FAERS Safety Report 24840123 (Version 1)
Quarter: 2025Q1

REPORT INFORMATION
  Report Type: Spontaneous
  Country: US (occurrence: None)
  Receive Date: 20250113
  Receipt Date: 20250113
  Transmission Date: 20250409
  Serious: No
  Sender: FDA-CTU
  Company Number: None

PATIENT
  Age: 48 Year
  Sex: Female

DRUGS (1)
  1. RINVOQ [Suspect]
     Active Substance: UPADACITINIB
     Indication: Rheumatoid arthritis
     Dosage: FREQUENCY : DAILY;?
     Route: 048
     Dates: start: 202405

REACTIONS (9)
  - Illness [None]
  - Respiratory arrest [None]
  - Aspiration [None]
  - Viral infection [None]
  - Rash [None]
  - Bronchitis [None]
  - Pneumonia [None]
  - Product dose omission in error [None]
  - Brain fog [None]
